FAERS Safety Report 9220440 (Version 1)
Quarter: 2013Q2

REPORT INFORMATION
  Report Type: Spontaneous
  Country: GB (occurrence: GB)
  Receive Date: 20130409
  Receipt Date: 20130409
  Transmission Date: 20140414
  Serious: Yes (Other)
  Sender: FDA-Public Use
  Company Number: GB-PFIZER INC-2013109177

PATIENT
  Age: 84 Year
  Sex: Female
  Weight: 61 kg

DRUGS (8)
  1. AMLODIPINE BESILATE [Suspect]
     Indication: HYPERTENSION
     Dosage: 5MG, DAILY IN THE MORNING
     Dates: start: 20130313, end: 20130319
  2. AMOXICILLIN [Concomitant]
     Dosage: 500 MG, UNK
  3. FLUCLOXACILLIN [Concomitant]
     Dosage: 500 MG, UNK
  4. CO-CODAMOL [Concomitant]
     Dosage: 50 MG, UNK
  5. ACETYLSALICYLIC ACID [Concomitant]
     Dosage: 75 MG, UNK
  6. PARACETAMOL [Concomitant]
     Dosage: 100 MG, UNK
  7. DUOTRAV [Concomitant]
  8. TRIFLUOPERAZINE [Concomitant]
     Dosage: 5ML/500MG
     Route: 048

REACTIONS (3)
  - Local swelling [Recovered/Resolved]
  - Contusion [Recovering/Resolving]
  - Skin discolouration [Recovering/Resolving]
